FAERS Safety Report 24787568 (Version 4)
Quarter: 2025Q2

REPORT INFORMATION
  Report Type: Spontaneous
  Country: US (occurrence: US)
  Receive Date: 20241230
  Receipt Date: 20250416
  Transmission Date: 20250717
  Serious: Yes (Other)
  Sender: SANOFI AVENTIS
  Company Number: US-SA-2024SA380186

PATIENT
  Sex: Female
  Weight: 136.07 kg

DRUGS (41)
  1. DUPIXENT [Suspect]
     Active Substance: DUPILUMAB
     Indication: Product used for unknown indication
     Dosage: 300 MG, QOW
     Route: 058
  2. WINREVAIR [Suspect]
     Active Substance: SOTATERCEPT-CSRK
  3. ADEMPAS [Suspect]
     Active Substance: RIOCIGUAT
  4. LEFLUNOMIDE [Concomitant]
     Active Substance: LEFLUNOMIDE
  5. XARELTO [Concomitant]
     Active Substance: RIVAROXABAN
  6. METOPROLOL SUCCINATE [Concomitant]
     Active Substance: METOPROLOL SUCCINATE
  7. LEVOTHYROXINE [Concomitant]
     Active Substance: LEVOTHYROXINE
  8. FLECAINIDE ACETATE [Concomitant]
     Active Substance: FLECAINIDE ACETATE
  9. SPIRONOLACTONE [Concomitant]
     Active Substance: SPIRONOLACTONE
  10. BUMETANIDE [Concomitant]
     Active Substance: BUMETANIDE
  11. VENLAFAXINE [Concomitant]
     Active Substance: VENLAFAXINE HYDROCHLORIDE
  12. LORAZEPAM [Concomitant]
     Active Substance: LORAZEPAM
  13. LOSARTAN POTASSIUM [Concomitant]
     Active Substance: LOSARTAN POTASSIUM
  14. POTASSIUM CHLORIDE [Concomitant]
     Active Substance: POTASSIUM CHLORIDE
  15. LORATADINE [Concomitant]
     Active Substance: LORATADINE
  16. ROSUVASTATIN CALCIUM [Concomitant]
     Active Substance: ROSUVASTATIN CALCIUM
  17. MUPIROCIN [Concomitant]
     Active Substance: MUPIROCIN
  18. PILOCARPINE HYDROCHLORIDE [Concomitant]
     Active Substance: PILOCARPINE HYDROCHLORIDE
  19. JARDIANCE [Concomitant]
     Active Substance: EMPAGLIFLOZIN
  20. XARELTO [Concomitant]
     Active Substance: RIVAROXABAN
  21. ARTHRITIS PAIN RELIEF [Concomitant]
     Active Substance: CAMPHOR (SYNTHETIC)\CAPSAICIN\METHYL SALICYLATE
  22. PIMECROLIMUS [Concomitant]
     Active Substance: PIMECROLIMUS
  23. MARINOL [Concomitant]
     Active Substance: DRONABINOL
  24. ALBUTEROL SULFATE [Concomitant]
     Active Substance: ALBUTEROL SULFATE
  25. OMEPRAZOLE [Concomitant]
     Active Substance: OMEPRAZOLE
  26. INFLECTRA [Concomitant]
     Active Substance: INFLIXIMAB-DYYB
  27. TRAMADOL HCL [Concomitant]
     Active Substance: TRAMADOL HYDROCHLORIDE
  28. EFFEXOR [Concomitant]
     Active Substance: VENLAFAXINE HYDROCHLORIDE
  29. GABAPENTIN [Concomitant]
     Active Substance: GABAPENTIN
  30. BACLOFEN [Concomitant]
     Active Substance: BACLOFEN
  31. ONDANSETRON HYDROCHLORIDE [Concomitant]
     Active Substance: ONDANSETRON HYDROCHLORIDE
  32. CLOBETASOL PROPIONATE [Concomitant]
     Active Substance: CLOBETASOL PROPIONATE
  33. VITAMIN D3 [Concomitant]
     Active Substance: CHOLECALCIFEROL
  34. UPTRAVI [Concomitant]
     Active Substance: SELEXIPAG
  35. CYANOCOBALAMIN [Concomitant]
     Active Substance: CYANOCOBALAMIN
  36. FLUOCINOLONE ACETONIDE [Concomitant]
     Active Substance: FLUOCINOLONE ACETONIDE
  37. OMEPRAZOLE [Concomitant]
     Active Substance: OMEPRAZOLE
  38. UPTRAVI [Concomitant]
     Active Substance: SELEXIPAG
  39. VENLAFAXINE HCL [Concomitant]
     Active Substance: VENLAFAXINE HYDROCHLORIDE
  40. BUMETANIDE [Concomitant]
     Active Substance: BUMETANIDE
  41. HUMIRA [Concomitant]
     Active Substance: ADALIMUMAB

REACTIONS (8)
  - Neuropathy peripheral [Unknown]
  - Epistaxis [Recovering/Resolving]
  - Nasal crusting [Unknown]
  - Visual impairment [Unknown]
  - Thyroid mass [Unknown]
  - Nasopharyngitis [Unknown]
  - Headache [Unknown]
  - Dizziness [Unknown]
